FAERS Safety Report 9638450 (Version 1)
Quarter: 2013Q4

REPORT INFORMATION
  Report Type: Spontaneous
  Country: GB (occurrence: GB)
  Receive Date: 20131022
  Receipt Date: 20131022
  Transmission Date: 20140711
  Serious: Yes (Life-Threatening, Other)
  Sender: FDA-Public Use
  Company Number: GB-JNJFOC-20131012791

PATIENT
  Age: 66 Year
  Sex: Female
  Weight: 47 kg

DRUGS (6)
  1. XARELTO [Suspect]
     Indication: ANTIPHOSPHOLIPID SYNDROME
     Route: 048
     Dates: start: 20130919, end: 20131007
  2. OMEPRAZOLE [Concomitant]
     Route: 065
  3. CANDESARTAN CILEXETIL [Concomitant]
     Route: 065
  4. LEVOTHYROXINE [Concomitant]
     Route: 065
  5. ATORVASTATIN [Concomitant]
     Route: 065
  6. BISOPROLOL FUMARATE [Concomitant]
     Route: 065

REACTIONS (2)
  - Haematemesis [Recovered/Resolved]
  - Nausea [Recovered/Resolved]
